FAERS Safety Report 6160856-1 (Version None)
Quarter: 2009Q2

REPORT INFORMATION
  Report Type: 
  Country: None (occurrence: None)
  Receive Date: 20090420
  Receipt Date: 20090415
  Transmission Date: 20091009
  Serious: Yes (Life-Threatening, Hospitalization)
  Sender: FDA-Public Use
  Company Number: FR-WYE-G03509209

PATIENT
  Sex: Male

DRUGS (10)
  1. TAZOCILLINE [Suspect]
     Dosage: 8 G TOTAL DAILY
     Route: 042
     Dates: start: 20090211, end: 20090223
  2. OFLOXACIN [Suspect]
     Dates: start: 20090211, end: 20090218
  3. VALACYCLOVIR HCL [Suspect]
     Dosage: 500 MG 1 TIME DAILY
     Route: 048
     Dates: end: 20090217
  4. LASIX [Suspect]
     Dosage: UNKNOWN
     Dates: start: 20090211, end: 20090218
  5. INIPOMP [Suspect]
     Dosage: UNKNOWN
     Route: 048
     Dates: start: 20090208, end: 20090217
  6. CALCIDOSE [Suspect]
     Dosage: 2 DOSES TOTAL DAILY
     Route: 048
     Dates: start: 20090207, end: 20090218
  7. FOLIC ACID [Suspect]
     Dosage: UNKNOWN
     Dates: start: 20090209, end: 20090218
  8. CALCIPARINE [Suspect]
     Dosage: 10000 IU TOTAL DAILY
     Route: 058
     Dates: start: 20090211, end: 20090217
  9. VELCADE [Suspect]
     Dosage: 3.5 MG STRENGTH; DOSE UNKNOWN
     Dates: start: 20090209, end: 20090216
  10. LYRICA [Suspect]
     Dosage: 50 MG TOTAL DAILY
     Route: 048
     Dates: end: 20090218

REACTIONS (3)
  - ENCEPHALOPATHY [None]
  - MYOCLONUS [None]
  - TUMOUR LYSIS SYNDROME [None]
